FAERS Safety Report 8872091 (Version 4)
Quarter: 2013Q2

REPORT INFORMATION
  Report Type: Spontaneous
  Country: NL (occurrence: NL)
  Receive Date: 20121029
  Receipt Date: 20130603
  Transmission Date: 20140414
  Serious: Yes (Disabling, Other)
  Sender: FDA-Public Use
  Company Number: NL-AMGEN-NLDSP2012067461

PATIENT
  Age: 45 Year
  Sex: Female

DRUGS (10)
  1. ENBREL [Suspect]
     Indication: PSORIATIC ARTHROPATHY
     Dosage: 50 MG, 2X/WEEK
     Route: 065
     Dates: start: 2005, end: 201210
  2. ENBREL [Suspect]
     Dosage: 50 MG, WEEKLY
     Route: 065
     Dates: end: 201210
  3. MELOXICAM [Concomitant]
     Indication: PSORIATIC ARTHROPATHY
     Dosage: 15 MG, UNK
     Route: 048
     Dates: start: 2006
  4. NEXIUM                             /01479302/ [Concomitant]
     Indication: PSORIATIC ARTHROPATHY
     Dosage: 40 MG, UNK
     Route: 048
     Dates: start: 2006
  5. INSULIN [Concomitant]
     Dosage: UNK
     Route: 058
     Dates: start: 2006
  6. CALCICHEW-D3 [Concomitant]
     Dosage: UNK
     Route: 048
     Dates: start: 2010
  7. THYRAX                             /00068001/ [Concomitant]
     Indication: HYPERTHYROIDISM
     Dosage: 175 MG, UNK
     Route: 048
     Dates: start: 1995
  8. ZOLPIDEM [Concomitant]
     Dosage: UNKNOWN
  9. DOVOBET [Concomitant]
     Dosage: UNKNOWN
  10. DOVONEX [Concomitant]
     Dosage: UNKNOWN

REACTIONS (1)
  - Cerebral ataxia [Recovered/Resolved with Sequelae]
